FAERS Safety Report 14808971 (Version 1)
Quarter: 2018Q2

REPORT INFORMATION
  Report Type: Spontaneous
  Country: US (occurrence: US)
  Receive Date: 20180425
  Receipt Date: 20180425
  Transmission Date: 20180711
  Serious: Yes (Other)
  Sender: FDA-Public Use
  Company Number: PHEH2018US015015

PATIENT
  Age: 65 Year
  Sex: Female
  Weight: 63 kg

DRUGS (1)
  1. COSENTYX [Suspect]
     Active Substance: SECUKINUMAB
     Indication: PSORIATIC ARTHROPATHY
     Dosage: 300 MG, Q30D
     Route: 058
     Dates: start: 20170612

REACTIONS (2)
  - Diarrhoea [Unknown]
  - Colitis microscopic [Recovering/Resolving]

NARRATIVE: CASE EVENT DATE: 20171129
